FAERS Safety Report 7231287-8 (Version None)
Quarter: 2011Q1

REPORT INFORMATION
  Report Type: 
  Country: None (occurrence: None)
  Receive Date: 20110118
  Receipt Date: 20110111
  Transmission Date: 20110831
  Serious: Yes (Death, Other)
  Sender: FDA-Public Use
  Company Number: JP-ROCHE-753667

PATIENT
  Age: 63 Year
  Sex: Female

DRUGS (22)
  1. METHOTREXATE [Concomitant]
     Route: 065
  2. VIDARABINE [Concomitant]
     Route: 065
  3. RIBAVIRIN [Concomitant]
  4. DORIPENEM [Concomitant]
  5. VORICONAZOLE [Concomitant]
     Route: 048
  6. METHYLPREDNISOLONE ACETATE [Concomitant]
  7. CEFEPIME HYDROCHLORIDE [Concomitant]
  8. BIAPENEM [Concomitant]
  9. IMIPENEM [Concomitant]
  10. MINOCYCLINE HYDROCHLORIDE [Concomitant]
  11. MYCAMINE [Concomitant]
  12. CEFTAZIDIME [Concomitant]
  13. PIPERACILLIN SODIUM [Concomitant]
  14. DENOSINE IV [Suspect]
     Indication: CYTOMEGALOVIRUS VIRAEMIA
     Dosage: OTHER: INFUSION
     Route: 042
  15. MELPHALAN [Concomitant]
  16. MEROPENEM TRIHYDRATE [Concomitant]
  17. TAZOBACTAM [Concomitant]
  18. FLUDARABINE PHOSPHATE [Concomitant]
     Route: 065
  19. AMPHOTERICIN B [Concomitant]
  20. CYCLOSPORINE [Concomitant]
     Route: 065
  21. TEICOPLANIN [Concomitant]
  22. CIPROFLOXACIN [Concomitant]

REACTIONS (2)
  - NEUTROPENIA [None]
  - FUNGAL SEPSIS [None]
